FAERS Safety Report 10553558 (Version 1)
Quarter: 2014Q4

REPORT INFORMATION
  Report Type: Spontaneous
  Country: GB (occurrence: GB)
  Receive Date: 20141030
  Receipt Date: 20141030
  Transmission Date: 20150529
  Serious: Yes (Disabling)
  Sender: FDA-Public Use
  Company Number: GB-009507513-1410GBR014855

PATIENT
  Age: 66 Year
  Sex: Female

DRUGS (1)
  1. SIMVASTATIN. [Suspect]
     Active Substance: SIMVASTATIN
     Indication: BLOOD CHOLESTEROL INCREASED
     Dosage: UNK
     Route: 048

REACTIONS (8)
  - Psychiatric symptom [Unknown]
  - Peripheral swelling [Unknown]
  - Fatigue [Unknown]
  - Social problem [Unknown]
  - Feeling abnormal [Unknown]
  - Movement disorder [Unknown]
  - Partner stress [Unknown]
  - Quality of life decreased [Unknown]
